FAERS Safety Report 23044716 (Version 1)
Quarter: 2023Q4

REPORT INFORMATION
  Report Type: Spontaneous
  Country: US (occurrence: US)
  Receive Date: 20231009
  Receipt Date: 20231009
  Transmission Date: 20240110
  Serious: No
  Sender: FDA-Public Use
  Company Number: US-SA-SAC20231003000766

PATIENT
  Sex: Male

DRUGS (1)
  1. DUPIXENT [Suspect]
     Active Substance: DUPILUMAB
     Indication: Eczema
     Dosage: DOSE OR AMOUNT: 300MG FREQUENCY: OTHER DUPIXENT EVERY 8 WEEKS, INSTEAD OF EVERY OTHER WEEK
     Route: 058

REACTIONS (1)
  - Inappropriate schedule of product administration [Unknown]
